FAERS Safety Report 15271671 (Version 1)
Quarter: 2018Q3

REPORT INFORMATION
  Report Type: Spontaneous
  Country: US (occurrence: US)
  Receive Date: 20180727
  Receipt Date: 20180727
  Transmission Date: 20181010
  Serious: No
  Sender: FDA-Public Use
  Company Number: None

PATIENT

DRUGS (2)
  1. WOMENS GENTLE LAXATIVE [Suspect]
     Active Substance: BISACODYL
     Indication: CONSTIPATION
     Dosage: ?          QUANTITY:3 TABLET(S);?
     Route: 048
     Dates: start: 20180724, end: 20180724
  2. WOMENS GENTLE LAXATIVE [Suspect]
     Active Substance: BISACODYL
     Indication: FAECES HARD
     Dosage: ?          QUANTITY:3 TABLET(S);?
     Route: 048
     Dates: start: 20180724, end: 20180724

REACTIONS (8)
  - Discomfort [None]
  - Hypophagia [None]
  - Impaired work ability [None]
  - Dizziness [None]
  - Abdominal pain upper [None]
  - Nausea [None]
  - Cold sweat [None]
  - Somnolence [None]

NARRATIVE: CASE EVENT DATE: 20180724
